FAERS Safety Report 5987288-0 (Version None)
Quarter: 2008Q4

REPORT INFORMATION
  Report Type: 
  Country: None (occurrence: None)
  Receive Date: 20081209
  Receipt Date: 20081202
  Transmission Date: 20090506
  Serious: Yes (Other)
  Sender: FDA-Public Use
  Company Number: BR-ELI_LILLY_AND_COMPANY-BR200811005617

PATIENT
  Sex: Male
  Weight: 95 kg

DRUGS (10)
  1. BYETTA [Suspect]
     Indication: TYPE 2 DIABETES MELLITUS
     Dosage: 5 UG, 2/D
     Route: 058
     Dates: start: 20080401, end: 20081113
  2. BYETTA [Suspect]
     Dosage: 10 UG, 2/D
     Route: 058
     Dates: start: 20081113, end: 20081123
  3. EUTHYROX [Concomitant]
     Dosage: 50 UG, DAILY (1/D)
     Route: 065
  4. DIOVAN A [Concomitant]
     Dosage: UNK, EACH MORNING
     Route: 065
  5. PREDNISONE TAB [Concomitant]
     Dosage: 5 MG, 2/D
     Route: 065
  6. HUMALOG MIX 25 [Concomitant]
     Dosage: 12 IU, 2/D
     Route: 065
  7. HUMALOG MIX 25 [Concomitant]
     Dosage: 10 IU, DAILY (1/D)
     Route: 065
  8. METFORMIN HCL [Concomitant]
     Dosage: 1 G, 2/D
     Route: 065
  9. AAS [Concomitant]
     Dosage: UNK, DAILY (1/D)
     Route: 065
  10. DIURETICS [Concomitant]
     Dosage: UNK, UNKNOWN
     Route: 065

REACTIONS (5)
  - ABDOMINAL PAIN [None]
  - NAUSEA [None]
  - PANCREATITIS ACUTE [None]
  - PRURITUS [None]
  - VOMITING [None]
